FAERS Safety Report 4909118-8 (Version None)
Quarter: 2006Q1

REPORT INFORMATION
  Report Type: 
  Country: None (occurrence: None)
  Receive Date: 20060210
  Receipt Date: 20060210
  Transmission Date: 20060701
  Serious: Yes (Hospitalization)
  Sender: FDA-Public Use
  Company Number: None

PATIENT
  Age: 59 Year
  Sex: Male
  Weight: 65.3 kg

DRUGS (1)
  1. ADRIAMYCIN PFS [Suspect]

REACTIONS (2)
  - NAUSEA [None]
  - VOMITING [None]
